FAERS Safety Report 19304025 (Version 1)
Quarter: 2021Q2

REPORT INFORMATION
  Report Type: Other
  Country: US (occurrence: US)
  Receive Date: 20210525
  Receipt Date: 20210525
  Transmission Date: 20210717
  Serious: Yes (Hospitalization)
  Sender: FDA-Public Use
  Company Number: US-ROCHE-2833772

PATIENT
  Age: 61 Year
  Sex: Female
  Weight: 86.26 kg

DRUGS (14)
  1. OCREVUS [Suspect]
     Active Substance: OCRELIZUMAB
     Route: 042
     Dates: start: 2020
  2. VITAMIN D2 [Concomitant]
     Active Substance: ERGOCALCIFEROL
     Indication: MULTIPLE SCLEROSIS
     Route: 048
     Dates: start: 2013
  3. BACLOFEN. [Concomitant]
     Active Substance: BACLOFEN
     Indication: MUSCLE SPASMS
     Route: 048
     Dates: start: 2013
  4. VALIUM [Suspect]
     Active Substance: DIAZEPAM
     Indication: MULTIPLE SCLEROSIS
     Route: 048
     Dates: start: 2015
  5. TRILEPTAL [Concomitant]
     Active Substance: OXCARBAZEPINE
  6. LIPITOR [Concomitant]
     Active Substance: ATORVASTATIN CALCIUM
  7. CALCIUM [Concomitant]
     Active Substance: CALCIUM
  8. EFFEXOR XR [Concomitant]
     Active Substance: VENLAFAXINE HYDROCHLORIDE
  9. OCREVUS [Suspect]
     Active Substance: OCRELIZUMAB
     Indication: RELAPSING-REMITTING MULTIPLE SCLEROSIS
     Route: 042
     Dates: start: 20200917
  10. BACLOFEN. [Concomitant]
     Active Substance: BACLOFEN
     Indication: MULTIPLE SCLEROSIS
  11. VITAMIN D3 [Concomitant]
     Active Substance: CHOLECALCIFEROL
     Indication: VITAMIN D DEFICIENCY
     Route: 048
     Dates: start: 2020
  12. ALLEGRA [Concomitant]
     Active Substance: FEXOFENADINE HYDROCHLORIDE
  13. FLONASE [Concomitant]
     Active Substance: FLUTICASONE PROPIONATE
  14. GABAPENTIN. [Concomitant]
     Active Substance: GABAPENTIN

REACTIONS (10)
  - Breast cyst [Recovered/Resolved]
  - Sleep apnoea syndrome [Unknown]
  - Blood cholesterol increased [Unknown]
  - Cognitive disorder [Unknown]
  - Pain [Unknown]
  - Arthritis [Unknown]
  - Vitamin D deficiency [Unknown]
  - Depression [Unknown]
  - COVID-19 pneumonia [Recovered/Resolved]
  - Chondropathy [Not Recovered/Not Resolved]

NARRATIVE: CASE EVENT DATE: 2018
